FAERS Safety Report 17495003 (Version 2)
Quarter: 2021Q1

REPORT INFORMATION
  Report Type: Spontaneous
  Country: US (occurrence: US)
  Receive Date: 20200303
  Receipt Date: 20210303
  Transmission Date: 20210419
  Serious: No
  Sender: FDA-Public Use
  Company Number: US-AMNEAL PHARMACEUTICALS-2019-IPXL-01362

PATIENT
  Sex: Male

DRUGS (1)
  1. RYTARY [Suspect]
     Active Substance: CARBIDOPA\LEVODOPA
     Indication: PARKINSON^S DISEASE
     Dosage: 3 DOSAGE FORM MORNING AT 6AM 2 DOSAGE FORM, 3 /DAY, 2 AT 10:30AM, 2 AT 3PM, AND 2 AT 8PM
     Route: 048
     Dates: start: 20190613

REACTIONS (2)
  - Confusional state [Not Recovered/Not Resolved]
  - Mental impairment [Unknown]
